FAERS Safety Report 4317455-3 (Version None)
Quarter: 2004Q1

REPORT INFORMATION
  Report Type: 
  Country: None (occurrence: None)
  Receive Date: 20040312
  Receipt Date: 20031008
  Transmission Date: 20041129
  Serious: Yes (Death)
  Sender: FDA-Public Use
  Company Number: 2004-BP-01827RP

PATIENT
  Age: 72 Year
  Sex: Female

DRUGS (1)
  1. SIFROL TABLETS (PRAMIPEXOL DIHYDROCHLORIDE) [Suspect]
     Indication: PARKINSON'S DISEASE
     Dosage: 1500 MCG (500 MCG, 1 TAB TID) PO
     Route: 048

REACTIONS (3)
  - DEPRESSED LEVEL OF CONSCIOUSNESS [None]
  - DYSPHAGIA [None]
  - PNEUMONIA ASPIRATION [None]
